FAERS Safety Report 9789930 (Version 2)
Quarter: 2013Q4

REPORT INFORMATION
  Report Type: Spontaneous
  Country: IT (occurrence: None)
  Receive Date: 20131227
  Receipt Date: 20131231
  Transmission Date: 20140711
  Serious: Yes (Hospitalization)
  Sender: FDA-Public Use
  Company Number: AUR-APL-2013-10660

PATIENT
  Age: 52 Year
  Sex: Male

DRUGS (1)
  1. METFORMIN (METFORMIN) [Suspect]
     Indication: DIABETES MELLITUS
     Route: 048

REACTIONS (5)
  - Abdominal pain upper [None]
  - Cough [None]
  - Vomiting [None]
  - Medication error [None]
  - Incorrect dose administered [None]
